FAERS Safety Report 20843125 (Version 1)
Quarter: 2022Q2

REPORT INFORMATION
  Report Type: Spontaneous
  Country: US (occurrence: None)
  Receive Date: 20220517
  Receipt Date: 20220517
  Transmission Date: 20220721
  Serious: No
  Sender: FDA-Public Use
  Company Number: None

PATIENT
  Sex: Female
  Weight: 55.34 kg

DRUGS (9)
  1. EVEROLIMUS [Suspect]
     Active Substance: EVEROLIMUS
     Indication: Carcinoid tumour
     Dosage: FREQUENCY : DAILY;?
     Route: 048
  2. LIPITOR [Concomitant]
     Active Substance: ATORVASTATIN CALCIUM
  3. INVOKANA [Concomitant]
     Active Substance: CANAGLIFLOZIN
  4. SANDOSTATIN [Concomitant]
     Active Substance: OCTREOTIDE ACETATE
  5. MINERALS\VITAMINS [Concomitant]
     Active Substance: MINERALS\VITAMINS
  6. PROBIOTICS NOS [Concomitant]
     Active Substance: PROBIOTICS NOS
  7. DEXAMETHASONE [Concomitant]
     Active Substance: DEXAMETHASONE
  8. VALSARTAN [Concomitant]
     Active Substance: VALSARTAN
  9. TRESIBA [Concomitant]
     Active Substance: INSULIN DEGLUDEC

REACTIONS (1)
  - COVID-19 [None]
